FAERS Safety Report 15853811 (Version 1)
Quarter: 2019Q1

REPORT INFORMATION
  Report Type: Spontaneous
  Country: US (occurrence: US)
  Receive Date: 20190121
  Receipt Date: 20190121
  Transmission Date: 20190417
  Serious: Yes (Hospitalization, Other)
  Sender: FDA-Public Use
  Company Number: None

PATIENT
  Age: 71 Year
  Sex: Female
  Weight: 79.2 kg

DRUGS (4)
  1. KEYTRUDA [Suspect]
     Active Substance: PEMBROLIZUMAB
     Indication: NEOPLASM MALIGNANT
  2. LISINOPRIL HCTZ [Concomitant]
     Active Substance: HYDROCHLOROTHIAZIDE\LISINOPRIL
  3. SYNTHROID [Concomitant]
     Active Substance: LEVOTHYROXINE SODIUM
  4. CELEBREX [Concomitant]
     Active Substance: CELECOXIB

REACTIONS (7)
  - Dry mouth [None]
  - Weight decreased [None]
  - Vomiting [None]
  - Diabetic ketoacidosis [None]
  - Decreased appetite [None]
  - Dry skin [None]
  - Diabetic coma [None]

NARRATIVE: CASE EVENT DATE: 20180730
